FAERS Safety Report 7271235-8 (Version None)
Quarter: 2011Q1

REPORT INFORMATION
  Report Type: 
  Country: None (occurrence: None)
  Receive Date: 20110202
  Receipt Date: 20110126
  Transmission Date: 20110831
  Serious: Yes (Other)
  Sender: FDA-Public Use
  Company Number: US-BRISTOL-MYERS SQUIBB COMPANY-15514342

PATIENT
  Age: 74 Year
  Sex: Female

DRUGS (2)
  1. GLUCOPHAGE [Suspect]
     Dates: start: 20020101, end: 20100101
  2. AVANDIA [Suspect]
     Dates: start: 20020101, end: 20100101

REACTIONS (2)
  - LIVER DISORDER [None]
  - RENAL DISORDER [None]
